FAERS Safety Report 24755253 (Version 1)
Quarter: 2024Q4

REPORT INFORMATION
  Report Type: Spontaneous
  Country: US (occurrence: US)
  Receive Date: 20241219
  Receipt Date: 20241219
  Transmission Date: 20250115
  Serious: No
  Sender: AADI BIOSCIENCE
  Company Number: US-AADI BIOSCIENCE, INC-24ABI000078

PATIENT
  Sex: Female

DRUGS (1)
  1. FYARRO [Suspect]
     Active Substance: SIROLIMUS
     Indication: Perivascular epithelioid cell tumour
     Dosage: UNK
     Route: 042

REACTIONS (2)
  - Low density lipoprotein increased [Unknown]
  - Blood triglycerides increased [Unknown]

NARRATIVE: CASE EVENT DATE: 20240901
